FAERS Safety Report 9452717 (Version 1)
Quarter: 2013Q3

REPORT INFORMATION
  Report Type: Report from Study
  Country: BR (occurrence: BR)
  Receive Date: 20130812
  Receipt Date: 20130812
  Transmission Date: 20140515
  Serious: Yes (Other)
  Sender: FDA-Public Use
  Company Number: PHHY2013BR085704

PATIENT
  Sex: Male
  Weight: 110 kg

DRUGS (4)
  1. SANDOSTATIN LAR (PATIENT BASIS) [Suspect]
     Indication: ACROMEGALY
     Dosage: 2 DF (20 MG)
     Route: 030
     Dates: start: 2009
  2. SANDOSTATIN LAR (PATIENT BASIS) [Suspect]
     Dosage: 40 MG, UNK
     Route: 030
     Dates: start: 2013
  3. SANDOSTATIN LAR (PATIENT BASIS) [Suspect]
     Dosage: 1 DF(20 MG), QMO
     Route: 030
     Dates: start: 2013
  4. PURAN T4 [Concomitant]
     Dosage: UNK UKN, UNK
     Dates: start: 2012

REACTIONS (1)
  - Thyroid neoplasm [Not Recovered/Not Resolved]
